FAERS Safety Report 19153756 (Version 1)
Quarter: 2021Q2

REPORT INFORMATION
  Report Type: Spontaneous
  Country: US (occurrence: US)
  Receive Date: 20210419
  Receipt Date: 20210419
  Transmission Date: 20210717
  Serious: No
  Sender: FDA-Public Use
  Company Number: US-TAKEDA-2021TUS023931

PATIENT
  Sex: Male
  Weight: 118 kg

DRUGS (2)
  1. DEXILANT [Suspect]
     Active Substance: DEXLANSOPRAZOLE
     Indication: HYPERCHLORHYDRIA
     Dosage: 60 MILLIGRAM, QD
     Route: 065
     Dates: start: 20210412
  2. LIPITOR [Concomitant]
     Active Substance: ATORVASTATIN CALCIUM
     Indication: BLOOD CHOLESTEROL ABNORMAL
     Dosage: UNK UNK, QD
     Route: 065

REACTIONS (3)
  - Paraesthesia [Unknown]
  - Extra dose administered [Unknown]
  - Hypoaesthesia [Unknown]
